FAERS Safety Report 16545353 (Version 1)
Quarter: 2019Q3

REPORT INFORMATION
  Report Type: Spontaneous
  Country: US (occurrence: US)
  Receive Date: 20190528
  Receipt Date: 20190528
  Transmission Date: 20191004
  Serious: No
  Sender: FDA-Public Use
  Company Number: None

PATIENT
  Age: 49 Year
  Sex: Male

DRUGS (2)
  1. PENICILLIN [Concomitant]
     Active Substance: PENICILLIN
  2. HUMIRA [Suspect]
     Active Substance: ADALIMUMAB
     Indication: SACROILIITIS
     Route: 058
     Dates: start: 20190408

REACTIONS (2)
  - Nephrolithiasis [None]
  - Urinary tract infection [None]

NARRATIVE: CASE EVENT DATE: 20190521
